FAERS Safety Report 7062133-3 (Version None)
Quarter: 2010Q4

REPORT INFORMATION
  Report Type: 
  Country: None (occurrence: None)
  Receive Date: 20101026
  Receipt Date: 20101021
  Transmission Date: 20110411
  Serious: Yes (Death)
  Sender: FDA-Public Use
  Company Number: PHHY2010AR70996

PATIENT
  Sex: Female

DRUGS (1)
  1. RASILEZ D [Suspect]
     Indication: HYPERTENSION
     Dosage: 300/12.5 MG, 1 TABLET DAILY
     Dates: start: 20100301

REACTIONS (1)
  - THROMBOSIS [None]
